FAERS Safety Report 24526480 (Version 1)
Quarter: 2024Q4

REPORT INFORMATION
  Report Type: Spontaneous
  Country: PT (occurrence: None)
  Receive Date: 20241021
  Receipt Date: 20241021
  Transmission Date: 20250115
  Serious: Yes (Disabling)
  Sender: ACCORD
  Company Number: None

PATIENT
  Age: 67 Year
  Sex: Female
  Weight: 47 kg

DRUGS (2)
  1. ZOLEDRONIC ACID [Suspect]
     Active Substance: ZOLEDRONIC ACID
     Indication: Adjuvant therapy
     Dosage: 4 MG MONTHLY
     Dates: start: 20240822
  2. RIBOCICLIB [Concomitant]
     Active Substance: RIBOCICLIB
     Indication: Breast cancer

REACTIONS (2)
  - Pain [Recovered/Resolved]
  - Pyrexia [Recovered/Resolved]

NARRATIVE: CASE EVENT DATE: 20240823
